FAERS Safety Report 14362448 (Version 1)
Quarter: 2018Q1

REPORT INFORMATION
  Report Type: Spontaneous
  Country: US (occurrence: US)
  Receive Date: 20180108
  Receipt Date: 20180108
  Transmission Date: 20180509
  Serious: No
  Sender: FDA-Public Use
  Company Number: US-BAYER-2018-003262

PATIENT
  Age: 93 Year
  Sex: Male

DRUGS (4)
  1. ASPIRIN. [Concomitant]
     Active Substance: ASPIRIN
     Dosage: UNK
  2. DR. SCHOLLS ODOR-X FOOT AND SNEAKER [Suspect]
     Active Substance: TOLNAFTATE
     Indication: PRURITUS
     Dosage: 1 DF, UNK
     Route: 061
     Dates: start: 20171229, end: 20180101
  3. STOOL SOFTENER (DOCUSATE) [Concomitant]
     Active Substance: DOCUSATE
     Dosage: UNK
  4. CLARITIN [Suspect]
     Active Substance: LORATADINE
     Indication: HYPERSENSITIVITY
     Dosage: UNK
     Route: 065
     Dates: start: 20180102

REACTIONS (5)
  - Drug administration error [Not Recovered/Not Resolved]
  - Application site swelling [Not Recovered/Not Resolved]
  - Off label use [Not Recovered/Not Resolved]
  - Application site erythema [Not Recovered/Not Resolved]
  - Product use in unapproved indication [Not Recovered/Not Resolved]
